FAERS Safety Report 5756045-2 (Version None)
Quarter: 2008Q2

REPORT INFORMATION
  Report Type: 
  Country: None (occurrence: None)
  Receive Date: 20080602
  Receipt Date: 20080526
  Transmission Date: 20081010
  Serious: Yes (Hospitalization)
  Sender: FDA-Public Use
  Company Number: PHHY2008FR09279

PATIENT
  Age: 88 Year
  Sex: Female

DRUGS (8)
  1. VOLTAREN [Suspect]
     Dosage: 50 MG, QD3SDO
     Route: 048
     Dates: start: 20080418, end: 20080420
  2. DIGOXIN [Suspect]
     Dosage: UNK
     Route: 048
     Dates: start: 20070510, end: 20080420
  3. METFORMIN HCL [Concomitant]
  4. LANTUS [Concomitant]
  5. IRBESARTAN [Concomitant]
  6. FLUDEX [Concomitant]
  7. DI-ANTALVIC [Concomitant]
  8. TRAMADOL CHLORHYDRATE [Concomitant]

REACTIONS (7)
  - BLOOD CREATININE INCREASED [None]
  - BRADYCARDIA [None]
  - CARDIOACTIVE DRUG LEVEL INCREASED [None]
  - CONFUSIONAL STATE [None]
  - CREATININE RENAL CLEARANCE DECREASED [None]
  - DIARRHOEA [None]
  - VOMITING [None]
